FAERS Safety Report 16633007 (Version 2)
Quarter: 2019Q3

REPORT INFORMATION
  Report Type: Report from Study
  Country: US (occurrence: US)
  Receive Date: 20190725
  Receipt Date: 20190802
  Transmission Date: 20191004
  Serious: Yes (Death)
  Sender: FDA-Public Use
  Company Number: US-ACTELION-A-NJ2019-184407

PATIENT
  Age: 53 Year
  Sex: Female
  Weight: 60.77 kg

DRUGS (3)
  1. UPTRAVI [Suspect]
     Active Substance: SELEXIPAG
     Dosage: 600 MCG, BID
     Route: 048
  2. ELIQUIS [Concomitant]
     Active Substance: APIXABAN
  3. UPTRAVI [Suspect]
     Active Substance: SELEXIPAG
     Indication: PULMONARY HYPERTENSION
     Dosage: 400 MCG, BID
     Route: 048
     Dates: start: 201812, end: 20190714

REACTIONS (7)
  - Feeling abnormal [Unknown]
  - Hypokinesia [Unknown]
  - Pain in extremity [Unknown]
  - Right ventricular failure [Fatal]
  - Drug ineffective [Unknown]
  - Nausea [Unknown]
  - Cardiogenic shock [Fatal]

NARRATIVE: CASE EVENT DATE: 20190714
